FAERS Safety Report 13311592 (Version 2)
Quarter: 2017Q3

REPORT INFORMATION
  Report Type: Spontaneous
  Country: US (occurrence: US)
  Receive Date: 20170309
  Receipt Date: 20170707
  Transmission Date: 20171127
  Serious: No
  Sender: FDA-Public Use
  Company Number: US-JNJFOC-20170302982

PATIENT
  Sex: Male

DRUGS (4)
  1. RISPERDAL [Suspect]
     Active Substance: RISPERIDONE
     Indication: MAJOR DEPRESSION
     Route: 048
     Dates: start: 2005, end: 2010
  2. INVEGA [Suspect]
     Active Substance: PALIPERIDONE
     Indication: SCHIZOPHRENIA
     Route: 048
     Dates: start: 2011, end: 2011
  3. RISPERDAL [Suspect]
     Active Substance: RISPERIDONE
     Indication: SCHIZOPHRENIA
     Route: 048
     Dates: start: 2005, end: 2010
  4. INVEGA [Suspect]
     Active Substance: PALIPERIDONE
     Indication: MAJOR DEPRESSION
     Route: 048
     Dates: start: 2011, end: 2011

REACTIONS (2)
  - Gynaecomastia [Unknown]
  - Abnormal weight gain [Recovering/Resolving]

NARRATIVE: CASE EVENT DATE: 2006
